FAERS Safety Report 5374838-0 (Version None)
Quarter: 2007Q2

REPORT INFORMATION
  Report Type: 
  Country: None (occurrence: None)
  Receive Date: 20070629
  Receipt Date: 20070620
  Transmission Date: 20071010
  Serious: Yes (Disabling)
  Sender: FDA-Public Use
  Company Number: B0464235A

PATIENT
  Age: 67 Year
  Sex: Female

DRUGS (6)
  1. AVANDAMET [Suspect]
     Dosage: 1TAB TWICE PER DAY
     Route: 048
     Dates: start: 20050701, end: 20070301
  2. LIPANTHYL [Concomitant]
     Dosage: 145MG PER DAY
     Route: 048
     Dates: end: 20061001
  3. MONOTILDIEM [Concomitant]
     Route: 065
  4. TRIATEC [Concomitant]
     Indication: HYPERTENSION
     Dosage: 2.5MG PER DAY
     Route: 048
  5. IMOVANE [Concomitant]
     Indication: SLEEP DISORDER
     Dosage: 7.5MG PER DAY
     Route: 048
  6. ASPIRIN [Concomitant]
     Indication: THROMBOSIS PROPHYLAXIS
     Dosage: 75MG PER DAY
     Route: 048

REACTIONS (8)
  - FOOT FRACTURE [None]
  - GAIT DISTURBANCE [None]
  - MYALGIA [None]
  - OSTEOMALACIA [None]
  - OSTEOPENIA [None]
  - PAIN IN EXTREMITY [None]
  - TENDON PAIN [None]
  - VITAMIN D DEFICIENCY [None]
